FAERS Safety Report 15738513 (Version 10)
Quarter: 2019Q3

REPORT INFORMATION
  Report Type: Spontaneous
  Country: US (occurrence: US)
  Receive Date: 20181219
  Receipt Date: 20190719
  Transmission Date: 20191004
  Serious: Yes (Other)
  Sender: FDA-Public Use
  Company Number: US-PFIZER INC-2018503716

PATIENT
  Age: 48 Year
  Sex: Female
  Weight: 77 kg

DRUGS (10)
  1. PROAIR [FLUTICASONE PROPIONATE] [Concomitant]
     Active Substance: FLUTICASONE PROPIONATE
     Indication: ASTHMA
     Dosage: UNK UNK, 2X/DAY
  2. LYRICA [Suspect]
     Active Substance: PREGABALIN
     Indication: NEUROPATHY PERIPHERAL
     Dosage: 100 MG, TWICE DAILY
     Route: 048
     Dates: start: 2018
  3. XANAX [Concomitant]
     Active Substance: ALPRAZOLAM
     Indication: ANXIETY
     Dosage: 1 MG, UNK
     Route: 048
  4. LYRICA [Suspect]
     Active Substance: PREGABALIN
     Dosage: 100 MG, UNK
     Dates: start: 2019, end: 2019
  5. LYRICA [Suspect]
     Active Substance: PREGABALIN
     Indication: POST-TRAUMATIC STRESS DISORDER
     Dosage: 100 MG, TWICE DAILY
     Route: 048
     Dates: start: 201811, end: 20190409
  6. LYRICA [Suspect]
     Active Substance: PREGABALIN
     Dosage: 100 MG, TWICE DAILY
     Dates: start: 20181106, end: 20190419
  7. LYRICA [Suspect]
     Active Substance: PREGABALIN
     Indication: LIMB TRAUMATIC AMPUTATION
     Dosage: 75 MG, TWICE DALIY
     Route: 048
     Dates: start: 201811, end: 201812
  8. LASIX [Concomitant]
     Active Substance: FUROSEMIDE
     Dosage: UNK
  9. HYDROCHLORZIDE [Concomitant]
     Active Substance: HYDROCHLOROTHIAZIDE
     Indication: BLOOD PRESSURE MEASUREMENT
     Dosage: 25 MG, 1X/DAY
     Route: 048
  10. POTASSIUM [Concomitant]
     Active Substance: POTASSIUM
     Dosage: UNK

REACTIONS (18)
  - Gastrointestinal perforation [Unknown]
  - Condition aggravated [Not Recovered/Not Resolved]
  - Glucose urine present [Not Recovered/Not Resolved]
  - Weight increased [Recovered/Resolved]
  - Impaired healing [Recovering/Resolving]
  - Pain [Unknown]
  - Swelling [Unknown]
  - Abdominal distension [Recovering/Resolving]
  - Post procedural complication [Recovering/Resolving]
  - Abdominal hernia [Not Recovered/Not Resolved]
  - Therapeutic product effect incomplete [Unknown]
  - Protein urine present [Not Recovered/Not Resolved]
  - Decreased appetite [Unknown]
  - Incision site swelling [Unknown]
  - Discomfort [Unknown]
  - Renal disorder [Not Recovered/Not Resolved]
  - Dyspnoea [Unknown]
  - Muscle disorder [Unknown]

NARRATIVE: CASE EVENT DATE: 20180506
